FAERS Safety Report 16218824 (Version 2)
Quarter: 2020Q2

REPORT INFORMATION
  Report Type: Spontaneous
  Country: US (occurrence: US)
  Receive Date: 20190419
  Receipt Date: 20200413
  Transmission Date: 20200713
  Serious: No
  Sender: FDA-Public Use
  Company Number: US-UPSHER-SMITH LABORATORIES, LLC-2018USL00627

PATIENT
  Age: 32 Year
  Sex: Female
  Weight: 74.83 kg

DRUGS (8)
  1. QUDEXY XR [Suspect]
     Active Substance: TOPIRAMATE
     Dosage: 25 MG, 1X/QD
     Route: 048
     Dates: start: 201901, end: 201901
  2. LEXAPRO [Concomitant]
     Active Substance: ESCITALOPRAM OXALATE
  3. QUDEXY XR [Suspect]
     Active Substance: TOPIRAMATE
     Indication: MIGRAINE
     Dosage: 25 MG, 1X/DAY
     Route: 048
     Dates: start: 20180906, end: 20181120
  4. QUDEXY XR [Suspect]
     Active Substance: TOPIRAMATE
     Indication: MIGRAINE
     Dosage: 100 MG, 1X/DAY
     Route: 048
     Dates: start: 20181121, end: 20190102
  5. OMEPRAZOLE. [Concomitant]
     Active Substance: OMEPRAZOLE
  6. UNSPECIFIED BIRTH CONTROL [Concomitant]
     Active Substance: UNSPECIFIED INGREDIENT
  7. QUDEXY XR [Suspect]
     Active Substance: TOPIRAMATE
     Dosage: 50 MG, 1X/DAY
     Route: 048
     Dates: start: 20190103, end: 201901
  8. CETIRIZINE [Concomitant]
     Active Substance: CETIRIZINE HYDROCHLORIDE

REACTIONS (4)
  - Lip disorder [Not Recovered/Not Resolved]
  - Hypoaesthesia oral [Not Recovered/Not Resolved]
  - Visual impairment [Recovering/Resolving]
  - Vertigo [Recovering/Resolving]

NARRATIVE: CASE EVENT DATE: 201809
